FAERS Safety Report 4974019-6 (Version None)
Quarter: 2006Q2

REPORT INFORMATION
  Report Type: 
  Country: None (occurrence: None)
  Receive Date: 20060410
  Receipt Date: 20060328
  Transmission Date: 20061013
  Serious: Yes (Death)
  Sender: FDA-Public Use
  Company Number: B0418816A

PATIENT
  Age: 52 Year
  Sex: Male

DRUGS (5)
  1. EPIVIR [Suspect]
     Indication: HIV INFECTION
     Dosage: 150 MG TWIE PER DAY / UNKNOWN
     Dates: start: 20001101
  2. ZIAGEN [Suspect]
     Indication: HIV INFECTION
     Dosage: 300 MG TWICE PER DAY/ UNKNOWN
     Dates: start: 20001101
  3. NEVIRAPINE [Suspect]
     Indication: HIV INFECTION
     Dosage: 200 MG TWICE PER DAY
     Dates: start: 20001101
  4. LOPINVAIR TABLET (LOPINAVIR) [Suspect]
     Indication: HIV INFECTION
     Dosage: 4 TABLET / TWICE PER DAY / UNKNOWN
     Dates: start: 20001101
  5. AGENERASE [Suspect]
     Indication: HIV INFECTION
     Dosage: 750 MG / TWICE PER DAY / UNKNOWN
     Dates: start: 20001101

REACTIONS (11)
  - AGITATION [None]
  - CEREBRAL VENTRICLE DILATATION [None]
  - COGNITIVE DISORDER [None]
  - IMMUNE RECONSTITUTION SYNDROME [None]
  - INCONTINENCE [None]
  - LEUKOENCEPHALOPATHY [None]
  - MENINGEAL DISORDER [None]
  - MENTAL DISORDER [None]
  - NERVOUS SYSTEM DISORDER [None]
  - PARKINSONISM [None]
  - TREATMENT NONCOMPLIANCE [None]
